FAERS Safety Report 16434820 (Version 2)
Quarter: 2019Q3

REPORT INFORMATION
  Report Type: Spontaneous
  Country: US (occurrence: US)
  Receive Date: 20190614
  Receipt Date: 20190729
  Transmission Date: 20191004
  Serious: No
  Sender: FDA-Public Use
  Company Number: US-JNJFOC-20190613663

PATIENT
  Age: 50 Year
  Sex: Female

DRUGS (1)
  1. FENTANYL. [Suspect]
     Active Substance: FENTANYL
     Indication: PRODUCT USED FOR UNKNOWN INDICATION
     Route: 062

REACTIONS (6)
  - Hyperhidrosis [Unknown]
  - Product adhesion issue [Unknown]
  - Product size issue [Unknown]
  - Wrong technique in product usage process [Unknown]
  - Blister [Unknown]
  - Anxiety [Unknown]
